FAERS Safety Report 5995456-7 (Version None)
Quarter: 2008Q4

REPORT INFORMATION
  Report Type: 
  Country: None (occurrence: None)
  Receive Date: 20081212
  Receipt Date: 20080930
  Transmission Date: 20090506
  Serious: No
  Sender: FDA-Public Use
  Company Number: US-ABBOTT-08P-163-0478915-00

PATIENT
  Sex: Female

DRUGS (4)
  1. HUMIRA [Suspect]
     Indication: CROHN'S DISEASE
     Route: 058
     Dates: start: 20080908, end: 20080908
  2. HUMIRA [Suspect]
     Route: 058
     Dates: start: 20080923, end: 20080923
  3. HUMIRA [Suspect]
     Route: 058
     Dates: start: 20081007
  4. LEVETIRACETAM [Concomitant]
     Indication: SLEEP DISORDER THERAPY
     Route: 048

REACTIONS (7)
  - BACK PAIN [None]
  - CHILLS [None]
  - INJECTION SITE PAIN [None]
  - INSOMNIA [None]
  - NAUSEA [None]
  - URINE ABNORMALITY [None]
  - WHITE BLOOD CELL COUNT INCREASED [None]
